FAERS Safety Report 9456461 (Version 1)
Quarter: 2013Q3

REPORT INFORMATION
  Report Type: Spontaneous
  Country: FR (occurrence: FR)
  Receive Date: 20130813
  Receipt Date: 20130813
  Transmission Date: 20140515
  Serious: Yes (Life-Threatening, Hospitalization, Other)
  Sender: FDA-Public Use
  Company Number: FR-ELI_LILLY_AND_COMPANY-FR201308000799

PATIENT
  Age: 65 Year
  Sex: Male

DRUGS (5)
  1. EFIENT [Suspect]
     Dosage: UNK
     Route: 048
     Dates: start: 20130613
  2. REOPRO [Suspect]
     Dosage: UNK
  3. ANGIOX [Suspect]
     Dosage: UNK
     Dates: start: 20130613, end: 20130613
  4. KARDEGIC [Suspect]
     Dosage: 300 MG, SINGLE
     Dates: start: 20130613, end: 20130613
  5. HEPARIN [Suspect]
     Dosage: UNK
     Dates: start: 20130514

REACTIONS (7)
  - Ventricular fibrillation [Recovered/Resolved]
  - Pulmonary haemorrhage [Recovered/Resolved]
  - Lung disorder [Unknown]
  - Thrombosis in device [Unknown]
  - Deep vein thrombosis [Unknown]
  - Pulmonary embolism [Unknown]
  - Hypovolaemia [Unknown]
